FAERS Safety Report 6022501-5 (Version None)
Quarter: 2008Q4

REPORT INFORMATION
  Report Type: 
  Country: None (occurrence: None)
  Receive Date: 20081230
  Receipt Date: 20081217
  Transmission Date: 20090506
  Serious: Yes (Hospitalization)
  Sender: FDA-Public Use
  Company Number: PHHY2008JP30920

PATIENT
  Sex: Female

DRUGS (1)
  1. MIKELAN LA 2% (NVO) [Suspect]
     Indication: GLAUCOMA
     Dosage: 1 GTT OU, QD
     Route: 047
     Dates: start: 20081101, end: 20081129

REACTIONS (1)
  - CARDIAC FAILURE [None]
